FAERS Safety Report 4685978-3 (Version None)
Quarter: 2005Q2

REPORT INFORMATION
  Report Type: 
  Country: None (occurrence: None)
  Receive Date: 20050607
  Receipt Date: 20050607
  Transmission Date: 20051028
  Serious: No
  Sender: FDA-Public Use
  Company Number: None

PATIENT
  Age: 35 Year
  Sex: Female
  Weight: 97 kg

DRUGS (1)
  1. DEXFERRUM [Suspect]
     Indication: IRON DEFICIENCY ANAEMIA
     Dosage: 75 MG    QM-W-F   INTRAVENOU
     Route: 042
     Dates: start: 20050531, end: 20050531

REACTIONS (3)
  - INFUSION RELATED REACTION [None]
  - INFUSION SITE PAIN [None]
  - SHOULDER PAIN [None]
